FAERS Safety Report 7560015-1 (Version None)
Quarter: 2011Q2

REPORT INFORMATION
  Report Type: 
  Country: None (occurrence: None)
  Receive Date: 20110621
  Receipt Date: 20110613
  Transmission Date: 20111010
  Serious: Yes (Hospitalization, Other)
  Sender: FDA-Public Use
  Company Number: PHHY2011US19204

PATIENT
  Sex: Male

DRUGS (12)
  1. CLOZAPINE [Suspect]
     Dosage: 300 MG, QD
     Route: 048
  2. RISPERIDONE [Suspect]
     Indication: SCHIZOAFFECTIVE DISORDER
     Dosage: 1 MG, BID
     Route: 048
     Dates: start: 20011231
  3. CETIRIZINE HCL [Concomitant]
     Dosage: 10 MG, UNK
  4. CLOZAPINE [Suspect]
     Dosage: 400 MG, QD
     Route: 048
  5. PROPRANOLOL [Concomitant]
     Dosage: 20 MG, BID
     Route: 048
  6. OXYBUTYNIN [Concomitant]
     Dosage: 5 MG, TID
     Route: 048
  7. FANAPT [Suspect]
     Indication: SCHIZOAFFECTIVE DISORDER
     Dosage: 10 MG, BID
     Route: 048
     Dates: start: 20101112, end: 20110218
  8. NEXIUM [Concomitant]
     Dosage: 40 MG, UNK
  9. CLOZAPINE [Suspect]
     Indication: SCHIZOAFFECTIVE DISORDER
     Dosage: 200 MG, QD
     Route: 048
     Dates: start: 20101112
  10. CYCLOBENZAPRINE [Concomitant]
     Dosage: 5 MG, BID
     Route: 048
  11. FERROUS SULFATE TAB [Concomitant]
     Dosage: 1 DF, UNK
  12. DOCUSATE [Concomitant]
     Dosage: 2 DF, UNK

REACTIONS (1)
  - COLITIS ISCHAEMIC [None]
